FAERS Safety Report 15329793 (Version 3)
Quarter: 2019Q2

REPORT INFORMATION
  Report Type: Spontaneous
  Country: US (occurrence: US)
  Receive Date: 20180829
  Receipt Date: 20190429
  Transmission Date: 20190711
  Serious: No
  Sender: FDA-Public Use
  Company Number: US-PFIZER INC-2017460882

PATIENT
  Age: 66 Year
  Sex: Male

DRUGS (13)
  1. LYRICA [Suspect]
     Active Substance: PREGABALIN
     Indication: TYPE 2 DIABETES MELLITUS
     Dosage: 225 MG, TWICE DAILY (TAKE ONE CAPSULE BY MOUTH IN THE MORNING AND TWO CAPSULES IN THE EVENING)
     Route: 048
     Dates: start: 20170825
  2. LYRICA [Suspect]
     Active Substance: PREGABALIN
     Dosage: UNK
  3. METOPROLOL TARTRATE. [Concomitant]
     Active Substance: METOPROLOL TARTRATE
     Dosage: 50 MG, 2X/DAY
     Route: 048
     Dates: start: 20161123
  4. LYRICA [Suspect]
     Active Substance: PREGABALIN
     Indication: DIABETIC NEUROPATHY
     Dosage: 225 MG, DAILY (STRETCHING IT TO ONE CAPSULE IN THE EVENING INSTEAD OF TWO)
     Route: 048
  5. NITROGLYCERIN. [Concomitant]
     Active Substance: NITROGLYCERIN
     Indication: CHEST PAIN
     Dosage: 0.4 MG, AS NEEDED(EVERY 5 MINUTES AS NEEDED/REPEAT AS NEEDED UP TO 3 TIMES)
     Route: 060
     Dates: start: 20161123
  6. ATORVASTATIN CALCIUM. [Concomitant]
     Active Substance: ATORVASTATIN CALCIUM
     Dosage: 40 MG, DAILY
     Route: 048
     Dates: start: 20170403
  7. CLOPIDOGREL BISULFATE. [Concomitant]
     Active Substance: CLOPIDOGREL BISULFATE
     Dosage: 75 MG, DAILY
     Route: 048
     Dates: start: 20170822
  8. INSULIN DETEMIR [Concomitant]
     Active Substance: INSULIN DETEMIR
     Dosage: 10 IU, 1X/DAY (LNJECT 10 UNITS INTO THE SKIN AT BEDTIME. INCREASE INSULIN BY 2 UNITS EVERY 3 DAYS U)
     Route: 058
     Dates: start: 20170503
  9. LISINOPRIL. [Concomitant]
     Active Substance: LISINOPRIL
     Dosage: 10 MG, DAILY (TAKE AN ADDITIONAL 10 MG IF SBP IS GREATER THAN 140 MM HG AFTER TAKING MORNING MEDS G)
     Route: 048
     Dates: start: 20170908
  10. ONDANSETRON HCL [Concomitant]
     Active Substance: ONDANSETRON HYDROCHLORIDE
     Indication: NAUSEA
     Dosage: 4 MG, AS NEEDED (EVERY 8 HOURS)
     Route: 048
     Dates: start: 20170501
  11. DULOXETINE HCL [Concomitant]
     Active Substance: DULOXETINE HYDROCHLORIDE
     Dosage: 60 MG, DAILY
     Route: 048
     Dates: start: 20170531
  12. SITAGLIPTIN PHOSPHATE [Concomitant]
     Active Substance: SITAGLIPTIN PHOSPHATE
     Dosage: 100 MG, DAILY
     Route: 048
     Dates: start: 20161206
  13. METFORMIN HCL [Concomitant]
     Active Substance: METFORMIN HYDROCHLORIDE
     Dosage: 500 MG, DAILY(WITH BREAKFAST)
     Route: 048
     Dates: start: 20161013

REACTIONS (3)
  - Product use issue [Unknown]
  - Insomnia [Unknown]
  - Intentional product misuse [Unknown]

NARRATIVE: CASE EVENT DATE: 20170825
